FAERS Safety Report 4871816-2 (Version None)
Quarter: 2006Q2

REPORT INFORMATION
  Report Type: 
  Country: None (occurrence: None)
  Receive Date: 20060104
  Receipt Date: 20051222
  Transmission Date: 20061013
  Serious: Yes (Hospitalization)
  Sender: FDA-Public Use
  Company Number: FR-JNJFOC-20051203832

PATIENT
  Sex: Female
  Weight: 54.2 kg

DRUGS (2)
  1. PLACEBO [Suspect]
     Route: 048
     Dates: start: 20051116, end: 20051208
  2. DEROXAT [Concomitant]
     Indication: ANXIETY
     Route: 065
     Dates: start: 20041031

REACTIONS (1)
  - FEMORAL NECK FRACTURE [None]
